FAERS Safety Report 16424398 (Version 1)
Quarter: 2019Q2

REPORT INFORMATION
  Report Type: Spontaneous
  Country: IT (occurrence: IT)
  Receive Date: 20190613
  Receipt Date: 20190613
  Transmission Date: 20190711
  Serious: Yes (Other)
  Sender: FDA-Public Use
  Company Number: IT-AMGEN-ITASP2019091250

PATIENT
  Age: 66 Year
  Sex: Female
  Weight: 87 kg

DRUGS (16)
  1. EPREX [Concomitant]
     Active Substance: ERYTHROPOIETIN
     Dosage: UNK
  2. EUTIROX [Concomitant]
     Active Substance: LEVOTHYROXINE SODIUM
     Dosage: UNK
  3. FLUOROURACIL. [Suspect]
     Active Substance: FLUOROURACIL
     Indication: ADENOCARCINOMA OF COLON
     Dosage: 3600 MILLIGRAM, CYCLICAL
     Route: 042
     Dates: start: 20190131
  4. LEVOLEUCOVORIN [LEVOFOLINIC ACID] [Concomitant]
     Indication: ADENOCARCINOMA OF COLON
     Dosage: 298 MILLIGRAM, CYCLICAL
     Route: 042
     Dates: start: 20190131, end: 20190301
  5. RANEXA [Concomitant]
     Active Substance: RANOLAZINE
     Dosage: UNK
  6. OXALIPLATIN. [Suspect]
     Active Substance: OXALIPLATIN
     Indication: ADENOCARCINOMA OF COLON
     Dosage: 126 MILLIGRAM, CYCLICAL
     Route: 042
     Dates: start: 20190131
  7. PANTOPRAZOLE [Concomitant]
     Active Substance: PANTOPRAZOLE
     Dosage: UNK
  8. FERRO-GRAD [Concomitant]
     Active Substance: FERROUS SULFATE
     Dosage: UNK
  9. PANITUMUMAB [Suspect]
     Active Substance: PANITUMUMAB
     Indication: ADENOCARCINOMA OF COLON
     Dosage: 520 MILLIGRAM, CYCLICAL
     Route: 042
     Dates: start: 20190131
  10. VICTOZA [Concomitant]
     Active Substance: LIRAGLUTIDE
     Dosage: UNK, PRE-FILLED PEN
  11. DUOPLAVIN [Concomitant]
     Active Substance: ASPIRIN\CLOPIDOGREL
     Dosage: UNK
  12. ALIFLUS [Concomitant]
     Active Substance: FLUTICASONE PROPIONATE\SALMETEROL XINAFOATE
     Dosage: UNK
  13. DOCETAXEL. [Suspect]
     Active Substance: DOCETAXEL
     Indication: ADENOCARCINOMA OF COLON
     Dosage: 74 MILLIGRAM, CYCLICAL
     Route: 042
     Dates: start: 20190131
  14. ADENURIC [Concomitant]
     Active Substance: FEBUXOSTAT
     Dosage: UNK
  15. TORVAST [Concomitant]
     Active Substance: ATORVASTATIN
     Dosage: UNK
  16. NORVASC [Concomitant]
     Active Substance: AMLODIPINE BESYLATE
     Dosage: UNK

REACTIONS (1)
  - Anaemia [Recovering/Resolving]

NARRATIVE: CASE EVENT DATE: 20190218
